FAERS Safety Report 26151968 (Version 1)
Quarter: 2025Q4

REPORT INFORMATION
  Report Type: Spontaneous
  Country: EU (occurrence: EU)
  Receive Date: 20251214
  Receipt Date: 20251214
  Transmission Date: 20260118
  Serious: Yes (Death, Life-Threatening, Hospitalization)
  Sender: GALPHARM INTERNATIONAL
  Company Number: EU-MLMSERVICE-20251124-PI725543-00029-1

PATIENT
  Age: 34 Year
  Sex: Female

DRUGS (4)
  1. ACETAMINOPHEN [Interacting]
     Active Substance: ACETAMINOPHEN
     Indication: Product used for unknown indication
     Dosage: 49 G, SINGLE
     Route: 048
  2. ACETAMINOPHEN [Interacting]
     Active Substance: ACETAMINOPHEN
     Dosage: 50 G, SINGLE
     Route: 048
  3. IRON [Interacting]
     Active Substance: IRON
     Indication: Product used for unknown indication
     Dosage: 4 G, SINGLE
     Route: 048
  4. IRON [Interacting]
     Active Substance: IRON
     Dosage: 5 G, SINGLE
     Route: 048

REACTIONS (5)
  - Overdose [Fatal]
  - Blood lactic acid increased [Fatal]
  - Potentiating drug interaction [Fatal]
  - Toxicity to various agents [Fatal]
  - Acute hepatic failure [Fatal]
